FAERS Safety Report 5467027-2 (Version None)
Quarter: 2007Q3

REPORT INFORMATION
  Report Type: 
  Country: None (occurrence: None)
  Receive Date: 20070925
  Receipt Date: 20070918
  Transmission Date: 20080115
  Serious: Yes (Other)
  Sender: FDA-Public Use
  Company Number: A0683613A

PATIENT
  Age: 53 Year
  Sex: Male

DRUGS (7)
  1. AVANDIA [Suspect]
     Indication: DRUG USE FOR UNKNOWN INDICATION
     Dosage: 4MG TWICE PER DAY
  2. ASPIRIN [Concomitant]
  3. DIABETA [Concomitant]
  4. DILAUDID [Concomitant]
  5. GLUCOPHAGE [Concomitant]
  6. LIPIDIL [Concomitant]
  7. LIPITOR [Concomitant]

REACTIONS (5)
  - CHEST PAIN [None]
  - DYSPNOEA [None]
  - FATIGUE [None]
  - HYPOAESTHESIA [None]
  - PALPITATIONS [None]
